FAERS Safety Report 4814533-7 (Version None)
Quarter: 2005Q4

REPORT INFORMATION
  Report Type: 
  Country: None (occurrence: None)
  Receive Date: 20051028
  Receipt Date: 20030423
  Transmission Date: 20060501
  Serious: Yes (Death, Hospitalization)
  Sender: FDA-Public Use
  Company Number: GB-SOLVAY-00205003321

PATIENT
  Age: 33728 Day
  Sex: Male
  Weight: 66 kg

DRUGS (1)
  1. PERINDOPRIL ERBUMINE [Suspect]
     Indication: CARDIAC FAILURE CONGESTIVE
     Dosage: DAILY DOSE:  UNKNOWN
     Route: 048
     Dates: start: 20010426, end: 20030401

REACTIONS (8)
  - ANAEMIA [None]
  - CELLULITIS [None]
  - DEHYDRATION [None]
  - DIVERTICULUM INTESTINAL [None]
  - DYSPNOEA [None]
  - GASTROINTESTINAL HAEMORRHAGE [None]
  - PANIC ATTACK [None]
  - PNEUMONIA [None]
